FAERS Safety Report 12310120 (Version 2)
Quarter: 2016Q2

REPORT INFORMATION
  Report Type: Spontaneous
  Country: DE (occurrence: DE)
  Receive Date: 20160427
  Receipt Date: 20160501
  Transmission Date: 20160815
  Serious: No
  Sender: FDA-Public Use
  Company Number: DE-SA-2016SA075499

PATIENT
  Sex: Female

DRUGS (1)
  1. ARAVA [Suspect]
     Active Substance: LEFLUNOMIDE
     Route: 048

REACTIONS (1)
  - Exposure during pregnancy [Unknown]
